FAERS Safety Report 5489047-4 (Version None)
Quarter: 2007Q4

REPORT INFORMATION
  Report Type: 
  Country: None (occurrence: None)
  Receive Date: 20071018
  Receipt Date: 20071009
  Transmission Date: 20080405
  Serious: Yes (Other)
  Sender: FDA-Public Use
  Company Number: PHBS2007DE17100

PATIENT
  Age: 50 Year
  Sex: Male

DRUGS (1)
  1. IMATINIB [Suspect]
     Indication: CHRONIC MYELOID LEUKAEMIA
     Dosage: 400 MG/D
     Route: 065
     Dates: start: 20000101

REACTIONS (5)
  - BLOOD LACTATE DEHYDROGENASE INCREASED [None]
  - MYELOFIBROSIS [None]
  - PLATELET COUNT DECREASED [None]
  - SPLENOMEGALY [None]
  - WHITE BLOOD CELL COUNT INCREASED [None]
